FAERS Safety Report 5248026-2 (Version None)
Quarter: 2007Q1

REPORT INFORMATION
  Report Type: 
  Country: None (occurrence: None)
  Receive Date: 20070222
  Receipt Date: 20070209
  Transmission Date: 20070707
  Serious: Yes (Hospitalization)
  Sender: FDA-Public Use
  Company Number: S07-ITA-00746-01

PATIENT
  Age: 33 Year
  Sex: Female
  Weight: 90 kg

DRUGS (3)
  1. ELOPRAM DROPS (CITALOPRAM HYDROCHLORIDE) [Suspect]
     Indication: SCHIZOPHRENIA
     Dosage: 25 DROPS QD PO
     Route: 048
     Dates: start: 20061110
  2. ARIPIPRAZOLE [Suspect]
     Indication: SCHIZOPHRENIA
     Dosage: 5 MG QD PO
     Route: 048
     Dates: start: 20061020
  3. DELORAZEPAM [Suspect]
     Indication: SCHIZOPHRENIA
     Dosage: 60 DROPS QD PO
     Route: 048
     Dates: start: 20061110

REACTIONS (7)
  - ABDOMINAL PAIN LOWER [None]
  - C-REACTIVE PROTEIN INCREASED [None]
  - MEAN CELL HAEMOGLOBIN CONCENTRATION DECREASED [None]
  - MEAN CELL HAEMOGLOBIN DECREASED [None]
  - MEAN CELL VOLUME DECREASED [None]
  - RED CELL DISTRIBUTION WIDTH INCREASED [None]
  - WHITE BLOOD CELL COUNT INCREASED [None]
